FAERS Safety Report 10100648 (Version 1)
Quarter: 2014Q2

REPORT INFORMATION
  Report Type: Spontaneous
  Country: JP (occurrence: JP)
  Receive Date: 20140423
  Receipt Date: 20140423
  Transmission Date: 20141212
  Serious: Yes (Other)
  Sender: FDA-Public Use
  Company Number: PHHY2014JP046473

PATIENT
  Age: 33 Year
  Sex: Female

DRUGS (2)
  1. HEPARIN [Suspect]
     Dosage: 20000 IU, QD
     Route: 042
  2. WARFARIN [Suspect]

REACTIONS (6)
  - Pulmonary congestion [Unknown]
  - Dyspnoea [Unknown]
  - Mitral valve stenosis [Unknown]
  - Thrombosis in device [Unknown]
  - Heparin-induced thrombocytopenia [Unknown]
  - Maternal exposure during pregnancy [Unknown]
